FAERS Safety Report 15057685 (Version 3)
Quarter: 2018Q3

REPORT INFORMATION
  Report Type: Report from Study
  Country: CN (occurrence: CN)
  Receive Date: 20180625
  Receipt Date: 20180809
  Transmission Date: 20181010
  Serious: Yes (Death, Hospitalization, Other)
  Sender: FDA-Public Use
  Company Number: CN-ROCHE-1732000

PATIENT
  Age: 74 Year
  Sex: Male
  Weight: 67 kg

DRUGS (1)
  1. AVASTIN [Suspect]
     Active Substance: BEVACIZUMAB
     Indication: COLORECTAL CANCER
     Route: 041
     Dates: start: 20151022

REACTIONS (12)
  - Neoplasm progression [Unknown]
  - Bacteraemia [Unknown]
  - Asthenia [Unknown]
  - Nasopharyngitis [Unknown]
  - Movement disorder [Unknown]
  - Hypertension [Unknown]
  - Peripheral swelling [Unknown]
  - Pyrexia [Unknown]
  - Musculoskeletal stiffness [Unknown]
  - Haemoptysis [Fatal]
  - Muscle twitching [Unknown]
  - Hypoacusis [Unknown]

NARRATIVE: CASE EVENT DATE: 201806
